FAERS Safety Report 14122035 (Version 1)
Quarter: 2017Q4

REPORT INFORMATION
  Report Type: Spontaneous
  Country: US (occurrence: US)
  Receive Date: 20171024
  Receipt Date: 20171024
  Transmission Date: 20180321
  Serious: No
  Sender: FDA-Public Use
  Company Number: US-SA-2017SA118067

PATIENT
  Age: 42 Year
  Sex: Female
  Weight: 54.43 kg

DRUGS (3)
  1. ARAVA [Suspect]
     Active Substance: LEFLUNOMIDE
     Indication: COLLAGEN DISORDER
     Route: 048
     Dates: start: 20170301, end: 20170617
  2. PLAQUENIL [Concomitant]
     Active Substance: HYDROXYCHLOROQUINE SULFATE
  3. ARAVA [Suspect]
     Active Substance: LEFLUNOMIDE
     Indication: COLLAGEN DISORDER
     Route: 048
     Dates: end: 20170620

REACTIONS (4)
  - Muscular weakness [Not Recovered/Not Resolved]
  - Hypoaesthesia [Not Recovered/Not Resolved]
  - Paraesthesia [Not Recovered/Not Resolved]
  - Tendonitis [Not Recovered/Not Resolved]

NARRATIVE: CASE EVENT DATE: 20170617
